FAERS Safety Report 23107467 (Version 1)
Quarter: 2023Q4

REPORT INFORMATION
  Report Type: Spontaneous
  Country: US (occurrence: US)
  Receive Date: 20231026
  Receipt Date: 20231026
  Transmission Date: 20240110
  Serious: No
  Sender: FDA-Public Use
  Company Number: US-JNJFOC-20231055442

PATIENT
  Age: 74 Year
  Sex: Female
  Weight: 86.6 kg

DRUGS (22)
  1. OPSUMIT [Suspect]
     Active Substance: MACITENTAN
     Indication: Pulmonary arterial hypertension
     Route: 048
  2. TREPROSTINIL SODIUM [Suspect]
     Active Substance: TREPROSTINIL SODIUM
     Indication: Pulmonary arterial hypertension
     Route: 055
     Dates: start: 20220705
  3. TREPROSTINIL SODIUM [Suspect]
     Active Substance: TREPROSTINIL SODIUM
     Route: 055
  4. CARDIZEM CD [Concomitant]
     Active Substance: DILTIAZEM HYDROCHLORIDE
  5. ALBUTEROL SULFATE [Concomitant]
     Active Substance: ALBUTEROL SULFATE
  6. RITUXIMAB [Concomitant]
     Active Substance: RITUXIMAB
  7. WIXELA INHUB [Concomitant]
     Active Substance: FLUTICASONE PROPIONATE\SALMETEROL XINAFOATE
  8. SPIRONOLACTONE [Concomitant]
     Active Substance: SPIRONOLACTONE
  9. ACYCLOVIR [Concomitant]
     Active Substance: ACYCLOVIR
  10. IPRATROPIUM [Concomitant]
     Active Substance: IPRATROPIUM
  11. OXYGEN [Concomitant]
     Active Substance: OXYGEN
  12. AZELASTINE [Concomitant]
     Active Substance: AZELASTINE
  13. FLONASE [Concomitant]
     Active Substance: FLUTICASONE PROPIONATE
  14. MUPIROCIN [Concomitant]
     Active Substance: MUPIROCIN
  15. BUMETANIDE [Concomitant]
     Active Substance: BUMETANIDE
  16. TYLENOL [Concomitant]
     Active Substance: ACETAMINOPHEN
  17. ELIQUIS [Concomitant]
     Active Substance: APIXABAN
  18. DICLOFENAC [Concomitant]
     Active Substance: DICLOFENAC
  19. MUCINEX [Concomitant]
     Active Substance: GUAIFENESIN
  20. OMEPRAZOLE [Concomitant]
     Active Substance: OMEPRAZOLE
  21. CALCITRIOL [Concomitant]
     Active Substance: CALCITRIOL
  22. LOSARTAN [Concomitant]
     Active Substance: LOSARTAN

REACTIONS (3)
  - Sinus disorder [Unknown]
  - Middle ear effusion [Unknown]
  - Drug ineffective [Unknown]
